FAERS Safety Report 7768777-5 (Version None)
Quarter: 2011Q3

REPORT INFORMATION
  Report Type: 
  Country: None (occurrence: None)
  Receive Date: 20110922
  Receipt Date: 20101004
  Transmission Date: 20111222
  Serious: No
  Sender: FDA-Public Use
  Company Number: US-ASTRAZENECA-2010SE46702

PATIENT
  Age: 69 Year
  Sex: Female
  Weight: 122.5 kg

DRUGS (18)
  1. PERCOCET [Concomitant]
  2. LANOXIN [Concomitant]
     Indication: CARDIOMYOPATHY
  3. DIAZEPAM [Concomitant]
  4. VITAMIN D [Concomitant]
     Indication: VITAMIN SUPPLEMENTATION
  5. RANITIDINE [Concomitant]
  6. TENORMIN [Concomitant]
  7. COZAAR [Concomitant]
  8. AFRIN [Concomitant]
  9. PRANDIN [Concomitant]
     Indication: DIABETES MELLITUS
  10. SEROQUEL XR [Suspect]
     Indication: ANXIETY
     Route: 048
     Dates: start: 20100930, end: 20101002
  11. SEROQUEL XR [Suspect]
     Indication: DEPRESSION
     Route: 048
     Dates: start: 20100930, end: 20101002
  12. PROAIR HFA [Concomitant]
  13. TYLENOL-500 [Concomitant]
  14. LIPITOR [Concomitant]
     Indication: HYPERCHOLESTEROLAEMIA
  15. MAXZIDE [Concomitant]
     Indication: CARDIOMYOPATHY
  16. LEVAQUIN [Concomitant]
     Indication: PROPHYLAXIS
  17. MAXZIDE [Concomitant]
  18. MILK OF MAGNESIA TAB [Concomitant]

REACTIONS (11)
  - DYSURIA [None]
  - DRUG DOSE OMISSION [None]
  - ORAL PAIN [None]
  - OROPHARYNGEAL PAIN [None]
  - CONFUSIONAL STATE [None]
  - OEDEMA PERIPHERAL [None]
  - SOMNOLENCE [None]
  - BLOOD PRESSURE INCREASED [None]
  - WRONG TECHNIQUE IN DRUG USAGE PROCESS [None]
  - NAUSEA [None]
  - DIZZINESS POSTURAL [None]
